FAERS Safety Report 19608217 (Version 2)
Quarter: 2021Q3

REPORT INFORMATION
  Report Type: Spontaneous
  Country: JP (occurrence: JP)
  Receive Date: 20210726
  Receipt Date: 20210827
  Transmission Date: 20211014
  Serious: Yes (Disabling)
  Sender: FDA-Public Use
  Company Number: NVSJ2021JP005936

PATIENT
  Age: 81 Year
  Sex: Male

DRUGS (4)
  1. MUCOSTA [Concomitant]
     Active Substance: REBAMIPIDE
     Indication: DRY EYE
     Dosage: 1 DRP, QID
     Route: 047
     Dates: start: 20180104
  2. BEOVU [Suspect]
     Active Substance: BROLUCIZUMAB-DBLL
     Indication: AGE-RELATED MACULAR DEGENERATION
     Dosage: 6 MG
     Route: 031
     Dates: start: 20210113, end: 20210113
  3. ADONA [Concomitant]
     Indication: AGE-RELATED MACULAR DEGENERATION
     Dosage: 30 MG, TID
     Route: 048
     Dates: start: 20120724
  4. KALLIKREIN [Concomitant]
     Active Substance: KALLIKREIN
     Indication: AGE-RELATED MACULAR DEGENERATION
     Dosage: 50 UNITS, TID
     Route: 048
     Dates: start: 20120724

REACTIONS (3)
  - Glaucoma [Recovering/Resolving]
  - Vision blurred [Unknown]
  - Ocular hypertension [Recovering/Resolving]

NARRATIVE: CASE EVENT DATE: 20210114
